FAERS Safety Report 4629213-0 (Version None)
Quarter: 2005Q2

REPORT INFORMATION
  Report Type: 
  Country: None (occurrence: None)
  Receive Date: 20050405
  Receipt Date: 20050322
  Transmission Date: 20051028
  Serious: Yes (Hospitalization)
  Sender: FDA-Public Use
  Company Number: 2005BI001337

PATIENT
  Age: 57 Year
  Sex: Male

DRUGS (8)
  1. AVONEX [Suspect]
     Indication: MULTIPLE SCLEROSIS
     Dosage: 30 UG; QW; IM
     Route: 030
     Dates: start: 19990101
  2. AVONEX [Suspect]
     Indication: MULTIPLE SCLEROSIS
     Dosage: 30 UG; QW; IM
     Route: 030
  3. PRAVACHOL [Concomitant]
  4. ZANAFLEX [Concomitant]
  5. BACLOFEN [Concomitant]
  6. FOSAMAX [Concomitant]
  7. AXID [Concomitant]
  8. MERDOLAN [Concomitant]

REACTIONS (1)
  - PNEUMONIA ASPIRATION [None]
